FAERS Safety Report 6702103-5 (Version None)
Quarter: 2010Q2

REPORT INFORMATION
  Report Type: 
  Country: None (occurrence: None)
  Receive Date: 20100429
  Receipt Date: 20100301
  Transmission Date: 20101027
  Serious: No
  Sender: FDA-Public Use
  Company Number: US-BAYER-201015528NA

PATIENT
  Age: 60 Year
  Sex: Male

DRUGS (1)
  1. LEUKINE [Suspect]
     Indication: PROSTATE CANCER
     Route: 058
     Dates: start: 20100226

REACTIONS (1)
  - INJECTION SITE ERYTHEMA [None]
